FAERS Safety Report 7432558-2 (Version None)
Quarter: 2011Q2

REPORT INFORMATION
  Report Type: 
  Country: None (occurrence: None)
  Receive Date: 20110422
  Receipt Date: 20110414
  Transmission Date: 20111010
  Serious: Yes (Other)
  Sender: FDA-Public Use
  Company Number: CA-SANOFI-AVENTIS-2011SA022195

PATIENT
  Age: 80 Year
  Sex: Male

DRUGS (7)
  1. LESCOL [Concomitant]
     Route: 048
  2. RAMIPRIL [Concomitant]
     Route: 048
  3. ELIGARD [Suspect]
     Indication: PROSTATE CANCER
     Dates: start: 20100217, end: 20110113
  4. ADALAT [Concomitant]
     Route: 048
  5. ATENOLOL [Concomitant]
     Route: 048
  6. ALDACTONE [Concomitant]
     Route: 048
  7. HYDROCHLOROTHIAZIDE [Concomitant]
     Route: 048

REACTIONS (1)
  - PHLEBITIS [None]
